FAERS Safety Report 8546934 (Version 3)
Quarter: 2013Q2

REPORT INFORMATION
  Report Type: Report from Study
  Country: US (occurrence: US)
  Receive Date: 20120504
  Receipt Date: 20130621
  Transmission Date: 20140414
  Serious: Yes (Hospitalization)
  Sender: FDA-Public Use
  Company Number: US-JNJFOC-20120411743

PATIENT
  Age: 16 Year
  Sex: Female
  Weight: 68.7 kg

DRUGS (13)
  1. REMICADE [Suspect]
     Indication: CROHN^S DISEASE
     Route: 042
     Dates: start: 20130509
  2. REMICADE [Suspect]
     Indication: CROHN^S DISEASE
     Route: 042
     Dates: start: 20070410
  3. HUMIRA [Concomitant]
     Dates: start: 20080814
  4. CIMZIA [Concomitant]
     Dates: start: 20080625
  5. ALPRAZOLAM [Concomitant]
  6. PREDNISONE [Concomitant]
  7. VITAMIN D [Concomitant]
  8. FOLIC ACID [Concomitant]
  9. 5-ASA [Concomitant]
     Route: 048
  10. OMEPRAZOLE [Concomitant]
  11. PAROXETINE [Concomitant]
  12. MVI [Concomitant]
  13. PROBIOTICS [Concomitant]

REACTIONS (2)
  - Nephrolithiasis [Not Recovered/Not Resolved]
  - Crohn^s disease [Recovered/Resolved]
